FAERS Safety Report 5916573-3 (Version None)
Quarter: 2008Q4

REPORT INFORMATION
  Report Type: 
  Country: None (occurrence: None)
  Receive Date: 20081013
  Receipt Date: 20080930
  Transmission Date: 20090506
  Serious: Yes (Hospitalization)
  Sender: FDA-Public Use
  Company Number: JP-BRISTOL-MYERS SQUIBB COMPANY-14129548

PATIENT
  Age: 93 Year
  Sex: Male

DRUGS (5)
  1. GATIFLOXACIN [Suspect]
     Indication: PROSTATITIS
     Dosage: 100 MG FROM FEB 2008-02MAR2008.
     Route: 048
     Dates: start: 20080901, end: 20080901
  2. FLIVAS [Concomitant]
     Route: 048
     Dates: start: 20080901
  3. PRAVASTATIN SODIUM [Concomitant]
     Route: 048
  4. MARZULENE-S [Concomitant]
  5. ZYLORIC [Concomitant]
     Route: 048

REACTIONS (4)
  - ACUTE GENERALISED EXANTHEMATOUS PUSTULOSIS [None]
  - DIZZINESS [None]
  - MALAISE [None]
  - RHABDOMYOLYSIS [None]
